FAERS Safety Report 8828784 (Version 3)
Quarter: 2013Q1

REPORT INFORMATION
  Report Type: Spontaneous
  Country: US (occurrence: US)
  Receive Date: 20121008
  Receipt Date: 20130119
  Transmission Date: 20140127
  Serious: Yes (Death, Other)
  Sender: FDA-Public Use
  Company Number: US-009507513-2012SP023090

PATIENT
  Sex: 0

DRUGS (1)
  1. NUVARING [Suspect]
     Indication: DYSPHAGIA
     Dosage: UNK
     Dates: start: 20100305, end: 20100508

REACTIONS (6)
  - Pulmonary embolism [Fatal]
  - Cardiac arrest [Unknown]
  - Abdominal pain [Unknown]
  - Mental status changes [Unknown]
  - Syncope [Unknown]
  - Ventricular fibrillation [Unknown]
